FAERS Safety Report 8270175-5 (Version None)
Quarter: 2012Q2

REPORT INFORMATION
  Report Type: 
  Country: None (occurrence: None)
  Receive Date: 20120410
  Receipt Date: 20120405
  Transmission Date: 20120825
  Serious: Yes (Other)
  Sender: FDA-Public Use
  Company Number: PHEH2006US04086

PATIENT
  Sex: Male

DRUGS (17)
  1. DIOVAN [Concomitant]
  2. STEROIDS NOS [Concomitant]
     Dates: start: 20040101, end: 20040101
  3. VELCADE [Concomitant]
     Indication: MULTIPLE MYELOMA
  4. VYTORIN [Concomitant]
  5. THALIDOMIDE [Concomitant]
     Indication: MULTIPLE MYELOMA
     Dosage: 200 MG, QD
  6. VITAMIN B6 [Concomitant]
  7. VITAMIN E [Concomitant]
  8. ALPHA LIPOIC ACID [Concomitant]
  9. COUMADIN [Concomitant]
  10. TESTIM [Concomitant]
  11. ZOMETA [Suspect]
     Route: 042
     Dates: start: 20000101, end: 20040803
  12. ANTIHISTAMINES [Concomitant]
     Indication: SEASONAL ALLERGY
  13. LASIX [Concomitant]
  14. AREDIA [Suspect]
  15. FLONASE [Concomitant]
  16. DECADRON [Concomitant]
     Dosage: 40 MG, UNK
  17. SYNTHROID [Concomitant]

REACTIONS (32)
  - SENSITIVITY OF TEETH [None]
  - STOMATITIS [None]
  - BLADDER CANCER [None]
  - ORAL CANDIDIASIS [None]
  - OSTEONECROSIS OF JAW [None]
  - SWELLING [None]
  - DENTAL CARIES [None]
  - DRY MOUTH [None]
  - GINGIVAL ULCERATION [None]
  - COSTOCHONDRITIS [None]
  - CORONARY ARTERY DISEASE [None]
  - HYPOTHYROIDISM [None]
  - BONE DISORDER [None]
  - NEOPLASM MALIGNANT [None]
  - HYPERTENSION [None]
  - DEAFNESS [None]
  - CARDIAC FAILURE CONGESTIVE [None]
  - DYSPNOEA [None]
  - ERYTHEMA [None]
  - MORGANELLA INFECTION [None]
  - MUSCLE INJURY [None]
  - TOOTH INFECTION [None]
  - OTITIS MEDIA ACUTE [None]
  - DISCOMFORT [None]
  - PERIODONTAL DISEASE [None]
  - PNEUMONIA [None]
  - ATRIAL FIBRILLATION [None]
  - PAIN [None]
  - OSTEOMYELITIS [None]
  - LEFT ATRIAL DILATATION [None]
  - AORTIC ARTERIOSCLEROSIS [None]
  - NEUROPATHY PERIPHERAL [None]
